FAERS Safety Report 5670014-2 (Version None)
Quarter: 2008Q1

REPORT INFORMATION
  Report Type: 
  Country: None (occurrence: None)
  Receive Date: 20080317
  Receipt Date: 20080305
  Transmission Date: 20080703
  Serious: Yes (Death, Life-Threatening, Hospitalization, Other)
  Sender: FDA-Public Use
  Company Number: DE-GENENTECH-241855

PATIENT
  Sex: Female
  Weight: 48 kg

DRUGS (6)
  1. MABTHERA [Suspect]
     Indication: NON-HODGKIN'S LYMPHOMA
     Dosage: 375 MG, UNK
     Route: 042
  2. MITOXANTRONE [Suspect]
     Indication: NON-HODGKIN'S LYMPHOMA
  3. CHLORAMBUCIL [Suspect]
     Indication: NON-HODGKIN'S LYMPHOMA
  4. PREDNISOLONE [Suspect]
     Indication: NON-HODGKIN'S LYMPHOMA
  5. FLUCYTOSINE [Suspect]
     Indication: NON-HODGKIN'S LYMPHOMA
  6. BENDAMUSTINE [Concomitant]
     Indication: NON-HODGKIN'S LYMPHOMA

REACTIONS (4)
  - BRONCHOSPASM [None]
  - CYTOKINE RELEASE SYNDROME [None]
  - PULMONARY HAEMORRHAGE [None]
  - RESPIRATORY DISTRESS [None]
